FAERS Safety Report 18305529 (Version 1)
Quarter: 2020Q3

REPORT INFORMATION
  Report Type: Spontaneous
  Country: US (occurrence: US)
  Receive Date: 20200923
  Receipt Date: 20200923
  Transmission Date: 20201103
  Serious: Yes (Hospitalization)
  Sender: FDA-Public Use
  Company Number: None

PATIENT
  Age: 50 Year
  Sex: Female

DRUGS (2)
  1. RINVOQ [Concomitant]
     Active Substance: UPADACITINIB
     Dates: start: 20200918, end: 20200923
  2. RINVOQ [Suspect]
     Active Substance: UPADACITINIB
     Indication: RHEUMATOID ARTHRITIS
     Dates: start: 20200918, end: 20200923

REACTIONS (3)
  - Dyspnoea [None]
  - Pain in extremity [None]
  - Skin warm [None]

NARRATIVE: CASE EVENT DATE: 20200923
